FAERS Safety Report 5772060-7 (Version None)
Quarter: 2008Q2

REPORT INFORMATION
  Report Type: 
  Country: None (occurrence: None)
  Receive Date: 20080528
  Receipt Date: 20080509
  Transmission Date: 20081010
  Serious: Yes (Life-Threatening, Hospitalization)
  Sender: FDA-Public Use
  Company Number: GAM-086-08-AU

PATIENT
  Age: 80 Year
  Sex: Male

DRUGS (7)
  1. OCTAGAM [Suspect]
     Indication: INCLUSION BODY MYOSITIS
     Dosage: 50 G I.V.
     Route: 042
     Dates: start: 20080508, end: 20080508
  2. ALLOPURINOL [Concomitant]
  3. CORDARONE [Concomitant]
  4. NAPROSYN SR (NAPROXEN) [Concomitant]
  5. SOLPRIN (ACETYLSALICYLIC ACID) [Concomitant]
  6. PANTOPRAZOLE SODIUM [Concomitant]
  7. VASOCARDOL (DILTIAZEM HYDROCHLORIDE) [Concomitant]

REACTIONS (6)
  - BLOOD PRESSURE INCREASED [None]
  - BRADYCARDIA [None]
  - HEADACHE [None]
  - MALAISE [None]
  - NAUSEA [None]
  - PARAESTHESIA [None]
